FAERS Safety Report 5405720-8 (Version None)
Quarter: 2007Q3

REPORT INFORMATION
  Report Type: 
  Country: None (occurrence: None)
  Receive Date: 20070806
  Receipt Date: 20070724
  Transmission Date: 20080115
  Serious: Yes (Hospitalization, Other)
  Sender: FDA-Public Use
  Company Number: GB-JNJFOC-20070602987

PATIENT
  Sex: Female
  Weight: 38.1 kg

DRUGS (10)
  1. REMICADE [Suspect]
     Indication: RHEUMATOID ARTHRITIS
     Route: 042
  2. PREDNISOLONE [Concomitant]
  3. LEFLUNOMIDE [Concomitant]
  4. CODEINE PHOSPHATE AND ACETAMINOPHEN [Concomitant]
  5. COZAAR [Concomitant]
  6. INDOCIN [Concomitant]
  7. LEVOTHYROXINE SODIUM [Concomitant]
  8. METHOTREXATE [Concomitant]
  9. OMEPRAZOLE [Concomitant]
  10. DICLOFENAC SODIUM [Concomitant]

REACTIONS (3)
  - EXTRADURAL ABSCESS [None]
  - INTERVERTEBRAL DISCITIS [None]
  - SPINAL DECOMPRESSION [None]
